FAERS Safety Report 13290612 (Version 1)
Quarter: 2017Q1

REPORT INFORMATION
  Report Type: Spontaneous
  Country: US (occurrence: US)
  Receive Date: 20170302
  Receipt Date: 20170302
  Transmission Date: 20170428
  Serious: Yes (Hospitalization, Other)
  Sender: FDA-Public Use
  Company Number: US-TEVA-743168USA

PATIENT
  Age: 4 Decade
  Sex: Female

DRUGS (2)
  1. ETIZOLAM [Suspect]
     Active Substance: ETIZOLAM
     Route: 065
  2. FENTANYL. [Suspect]
     Active Substance: FENTANYL
     Route: 065

REACTIONS (5)
  - Myocardial ischaemia [Recovering/Resolving]
  - Neuropathy peripheral [Recovering/Resolving]
  - Rhabdomyolysis [Recovering/Resolving]
  - Counterfeit drug administered [Recovering/Resolving]
  - Drug abuse [Recovering/Resolving]
